FAERS Safety Report 7177162-9 (Version None)
Quarter: 2010Q4

REPORT INFORMATION
  Report Type: 
  Country: None (occurrence: None)
  Receive Date: 20101220
  Receipt Date: 20101213
  Transmission Date: 20110411
  Serious: Yes (Hospitalization)
  Sender: FDA-Public Use
  Company Number: US-SANOFI-AVENTIS-2010SA061745

PATIENT
  Age: 62 Year
  Sex: Female
  Weight: 62.14 kg

DRUGS (4)
  1. PLAQUENIL [Suspect]
     Route: 048
     Dates: start: 20100916, end: 20100901
  2. CLOBETASOL [Concomitant]
  3. CLOBETASOL [Concomitant]
  4. PREDNISONE [Concomitant]

REACTIONS (13)
  - BLISTER [None]
  - CHILLS [None]
  - EYE DISORDER [None]
  - FEELING COLD [None]
  - HEADACHE [None]
  - NAUSEA [None]
  - PSORIASIS [None]
  - RASH GENERALISED [None]
  - RESPIRATORY DISORDER [None]
  - SCAR [None]
  - SKIN BURNING SENSATION [None]
  - SKIN DISORDER [None]
  - SKIN LESION [None]
